FAERS Safety Report 9408428 (Version 2)
Quarter: 2013Q3

REPORT INFORMATION
  Report Type: Spontaneous
  Country: DK (occurrence: DK)
  Receive Date: 20130718
  Receipt Date: 20130723
  Transmission Date: 20140515
  Serious: Yes (Death, Disabling, Other)
  Sender: FDA-Public Use
  Company Number: DK-BAXTER-2013BAX027617

PATIENT
  Age: 15 Year
  Sex: Female
  Weight: 34 kg

DRUGS (6)
  1. SENDOXAN [Suspect]
     Indication: INTERSTITIAL LUNG DISEASE
     Route: 065
     Dates: start: 20120306
  2. ENBREL [Suspect]
     Indication: JUVENILE IDIOPATHIC ARTHRITIS
     Route: 058
     Dates: start: 20101210, end: 20120206
  3. METHOTREXAAT SANDOZ [Suspect]
     Indication: JUVENILE IDIOPATHIC ARTHRITIS
     Dosage: 10-15 MG/M2
     Route: 048
     Dates: start: 20101020, end: 20111213
  4. METHOTREXAAT SANDOZ [Suspect]
     Indication: INTERSTITIAL LUNG DISEASE
  5. PREDNISONE [Suspect]
     Indication: JUVENILE IDIOPATHIC ARTHRITIS
     Route: 065
     Dates: start: 20101020, end: 201103
  6. VITAMIN D [Concomitant]
     Indication: PRODUCT USED FOR UNKNOWN INDICATION
     Route: 065

REACTIONS (6)
  - Cardiac arrest [Fatal]
  - Septic shock [Fatal]
  - Dyspnoea exertional [Not Recovered/Not Resolved]
  - Interstitial lung disease [Not Recovered/Not Resolved]
  - Pneumonia [Unknown]
  - Pneumothorax [Unknown]
